FAERS Safety Report 8248876 (Version 8)
Quarter: 2013Q4

REPORT INFORMATION
  Report Type: Report from Study
  Country: TR (occurrence: TR)
  Receive Date: 20111117
  Receipt Date: 20131119
  Transmission Date: 20140711
  Serious: Yes (Life-Threatening, Hospitalization)
  Sender: FDA-Public Use
  Company Number: PHHO2011TR019201

PATIENT
  Sex: 0

DRUGS (7)
  1. ICL670A [Suspect]
     Indication: IRON OVERLOAD
     Dosage: 1000 MG/ DAY
     Dates: start: 20111104, end: 20111113
  2. ICL670A [Suspect]
     Dosage: 10 MG/KG/ DAY
     Dates: start: 20111118, end: 20111124
  3. DESFERAL [Suspect]
     Indication: IRON OVERLOAD
     Dosage: 1000 MG/ DAY
     Dates: start: 20111104, end: 20111113
  4. DESFERAL [Suspect]
     Dosage: UNK
     Dates: start: 20111129
  5. PARACETAMOL [Suspect]
     Indication: HEADACHE
     Dosage: UNK
     Dates: start: 20111111
  6. PARACETAMOL [Suspect]
     Indication: PYREXIA
  7. ERYTHROCYTES [Concomitant]

REACTIONS (4)
  - Calcium deficiency [Not Recovered/Not Resolved]
  - Drug reaction with eosinophilia and systemic symptoms [Recovered/Resolved]
  - Infection [Recovered/Resolved]
  - Asthenia [Recovered/Resolved]
